FAERS Safety Report 10179426 (Version 3)
Quarter: 2014Q3

REPORT INFORMATION
  Report Type: Spontaneous
  Country: US (occurrence: US)
  Receive Date: 20140519
  Receipt Date: 20140926
  Transmission Date: 20150326
  Serious: Yes (Other)
  Sender: FDA-Public Use
  Company Number: US-009507513-1405USA006778

PATIENT
  Sex: Female

DRUGS (1)
  1. DESOGEN [Suspect]
     Active Substance: DESOGESTREL\ETHINYL ESTRADIOL
     Indication: CONTRACEPTION
     Dosage: STRENGTH: 28 (UNIT NOT PROVIDED), ONE TABLET DAILY
     Route: 048
     Dates: start: 1984

REACTIONS (8)
  - Drug tolerance [Unknown]
  - Surgery [Unknown]
  - Oligomenorrhoea [Unknown]
  - Uterine leiomyoma [Unknown]
  - Pelvic fluid collection [Unknown]
  - Endometriosis [Unknown]
  - Anxiety [Unknown]
  - Abdominal pain upper [Unknown]

NARRATIVE: CASE EVENT DATE: 1984
